FAERS Safety Report 5809616-9 (Version None)
Quarter: 2008Q3

REPORT INFORMATION
  Report Type: 
  Country: None (occurrence: None)
  Receive Date: 20080715
  Receipt Date: 20080707
  Transmission Date: 20090109
  Serious: Yes (Other)
  Sender: FDA-Public Use
  Company Number: GB-ROCHE-574557

PATIENT
  Sex: Female
  Weight: 96 kg

DRUGS (6)
  1. ORLISTAT [Suspect]
     Indication: OBESITY
     Route: 048
     Dates: start: 20070402, end: 20080601
  2. RAMIPRIL [Concomitant]
     Indication: HYPERTENSION
     Route: 048
  3. SIMVASTATIN [Concomitant]
     Route: 048
  4. ASPIRIN [Concomitant]
     Dosage: ENTERED AS ASPRIN
     Route: 048
  5. NOVORAPID [Concomitant]
     Dosage: ENTERED AS 3X/DAY - 10-12 UNITS EACH MEAL
     Route: 065
  6. TAMOXIFEN CITRATE [Concomitant]
     Indication: BREAST CANCER
     Route: 048
     Dates: start: 20040101

REACTIONS (1)
  - ABDOMINAL STRANGULATED HERNIA [None]
